FAERS Safety Report 22379578 (Version 1)
Quarter: 2023Q2

REPORT INFORMATION
  Report Type: Spontaneous
  Country: US (occurrence: US)
  Receive Date: 20230529
  Receipt Date: 20230529
  Transmission Date: 20230721
  Serious: No
  Sender: FDA-Public Use
  Company Number: US-LEO Pharma-352374

PATIENT
  Sex: Female

DRUGS (1)
  1. ADBRY [Suspect]
     Active Substance: TRALOKINUMAB-LDRM
     Indication: Product used for unknown indication
     Dosage: DOSAGE : 300 MG SUBCUTANEOUSLY ?STARTED - PARTIAL : 02/2023
     Route: 058
     Dates: start: 202302

REACTIONS (1)
  - Dermatitis atopic [Unknown]
